FAERS Safety Report 4296983-3 (Version None)
Quarter: 2004Q1

REPORT INFORMATION
  Report Type: 
  Country: None (occurrence: None)
  Receive Date: 20040213
  Receipt Date: 20040128
  Transmission Date: 20041129
  Serious: Yes (Death)
  Sender: FDA-Public Use
  Company Number: 2004-DE-00457GD

PATIENT
  Age: 57 Year
  Sex: Male

DRUGS (7)
  1. CYCLOPHOSPHAMIDE [Suspect]
     Indication: LYMPHOMA
  2. PREDNISONE [Suspect]
     Indication: LYMPHOMA
  3. BLEOMYCIN [Suspect]
     Indication: LYMPHOMA
  4. ETOPOSIDE [Suspect]
     Indication: LYMPHOMA
  5. DOXORUBICIN HCL [Suspect]
     Indication: LYMPHOMA
  6. VINCRISTINE [Suspect]
     Indication: LYMPHOMA
  7. PROCARBAZINE (PROCARBAZINE) [Suspect]
     Indication: LYMPHOMA

REACTIONS (2)
  - LEUKAEMIA RECURRENT [None]
  - STEM CELL TRANSPLANT [None]
